FAERS Safety Report 25956584 (Version 1)
Quarter: 2025Q4

REPORT INFORMATION
  Report Type: Spontaneous
  Country: RU (occurrence: RU)
  Receive Date: 20251024
  Receipt Date: 20251024
  Transmission Date: 20260118
  Serious: Yes (Other)
  Sender: ROCHE
  Company Number: RU-ROCHE-10000412272

PATIENT
  Age: 42 Year
  Sex: Male

DRUGS (4)
  1. VEMURAFENIB [Suspect]
     Active Substance: VEMURAFENIB
     Indication: Metastatic malignant melanoma
     Dosage: 1,920 MG/DAY
     Route: 065
  2. VEMURAFENIB [Suspect]
     Active Substance: VEMURAFENIB
     Dosage: VEMURAFENIB 720 MG/DAY FOR 1-28 DAYS
     Route: 065
  3. COBIMETINIB [Suspect]
     Active Substance: COBIMETINIB
     Indication: Metastatic malignant melanoma
     Dosage: 60 MG/DAY FOR 1-21 DAYS??BREAK FOR 7 DAYS (CYCLE: 28 DAYS)
     Route: 065
  4. ATEZOLIZUMAB [Suspect]
     Active Substance: ATEZOLIZUMAB
     Indication: Metastatic malignant melanoma
     Dosage: 25TH INFUSION OF ATEZOLIZUMAB INFUSIONS WAS GIVEN UNTIL MAR-2024
     Route: 042

REACTIONS (6)
  - Therapy partial responder [Unknown]
  - Alanine aminotransferase increased [Unknown]
  - Aspartate aminotransferase increased [Unknown]
  - Blood creatinine increased [Unknown]
  - Neutropenia [Unknown]
  - Metastatic malignant melanoma [Unknown]
